FAERS Safety Report 7316245-7 (Version None)
Quarter: 2011Q1

REPORT INFORMATION
  Report Type: 
  Country: None (occurrence: None)
  Receive Date: 20110225
  Receipt Date: 20110211
  Transmission Date: 20110831
  Serious: Yes (Death, Hospitalization, Other)
  Sender: FDA-Public Use
  Company Number: IT-CELGENEUS-083-21880-11012578

PATIENT
  Sex: Female

DRUGS (15)
  1. PREDNISONE [Suspect]
     Indication: MULTIPLE MYELOMA
     Route: 065
     Dates: start: 20101129
  2. LANSOPRAZOL [Concomitant]
     Indication: PROPHYLAXIS
     Route: 065
  3. METOPROLOL SUCCINATE [Concomitant]
     Indication: HYPERTENSION
     Route: 065
  4. FUROSEMIDE [Concomitant]
     Indication: HYPERTENSION
     Route: 065
  5. CLOPIDOGREL [Concomitant]
     Indication: HYPERTENSION
     Route: 065
  6. REVLIMID [Suspect]
     Indication: MULTIPLE MYELOMA
     Route: 048
     Dates: start: 20101129, end: 20101213
  7. GLIBOMET [Concomitant]
     Dosage: 400+2.5MG
     Route: 065
  8. NISTATIN [Concomitant]
     Indication: PROPHYLAXIS
     Route: 065
  9. ASA [Concomitant]
     Indication: PROPHYLAXIS
     Route: 065
  10. CYCLOPHOSPHAMIDE [Suspect]
     Indication: MULTIPLE MYELOMA
     Route: 065
     Dates: start: 20101129, end: 20101213
  11. BACTRIM [Concomitant]
     Indication: HYPERTENSION
     Route: 065
  12. RAMIPRIL [Concomitant]
     Indication: HYPERTENSION
     Route: 065
  13. ALLOPURINOL [Concomitant]
     Indication: PROPHYLAXIS
     Route: 065
  14. METOCLOPRAMIDE HCL [Concomitant]
     Indication: PROPHYLAXIS
     Route: 065
  15. CANRENONE [Concomitant]
     Indication: HYPERTENSION
     Route: 065

REACTIONS (3)
  - RASH ERYTHEMATOUS [None]
  - DIABETES MELLITUS [None]
  - RENAL FAILURE [None]
